FAERS Safety Report 11314110 (Version 1)
Quarter: 2015Q3

REPORT INFORMATION
  Report Type: Report from Study
  Country: US (occurrence: US)
  Receive Date: 20150727
  Receipt Date: 20150727
  Transmission Date: 20151125
  Serious: No
  Sender: FDA-Public Use
  Company Number: US-CELGENEUS-USA-2015071709

PATIENT
  Sex: Female

DRUGS (1)
  1. REVLIMID [Suspect]
     Active Substance: LENALIDOMIDE
     Indication: PLASMA CELL MYELOMA
     Route: 048

REACTIONS (7)
  - Decreased appetite [Recovered/Resolved]
  - Treatment failure [Unknown]
  - Bedridden [Recovered/Resolved]
  - Weight decreased [Unknown]
  - Bone lesion [Unknown]
  - Asthenia [Recovering/Resolving]
  - Nausea [Unknown]
